FAERS Safety Report 9466145 (Version 2)
Quarter: 2014Q1

REPORT INFORMATION
  Report Type: Spontaneous
  Country: US (occurrence: US)
  Receive Date: 20130820
  Receipt Date: 20140127
  Transmission Date: 20141002
  Serious: Yes (Death, Hospitalization, Other)
  Sender: FDA-Public Use
  Company Number: US-B.I. PHARMACEUTICALS,INC./RIDGEFIELD-2013-BI-25634BP

PATIENT
  Age: 61 Year
  Sex: Male
  Weight: 86.18 kg

DRUGS (11)
  1. PRADAXA [Suspect]
     Indication: ANTICOAGULANT THERAPY
     Dosage: 300 MG
     Route: 048
     Dates: start: 20120118, end: 20120218
  2. PRADAXA [Suspect]
     Indication: ATRIAL FIBRILLATION
  3. TACROLIMUS [Concomitant]
     Dosage: 1 MG
     Route: 048
  4. MYCOPHENOLATE MOFETIL [Concomitant]
     Dosage: 1000 MG
  5. METOPROLOL TARTRATE [Concomitant]
     Dosage: 12.5 MG
     Route: 048
  6. AMIODARONE HCL [Concomitant]
     Dosage: 200 MG
     Route: 048
  7. ATORVASTATIN CALCIUM [Concomitant]
     Dosage: 10 MG
     Route: 048
  8. METOPROLOL TARTRATE [Concomitant]
     Dosage: 162.5 MG
     Route: 048
  9. MULTIVITAMIN [Concomitant]
     Route: 048
  10. OMEGA-3 FATTY ACIDS [Concomitant]
     Dosage: 1000 MG
     Route: 048
  11. SUPER B-50 B COMPLEX [Concomitant]
     Route: 048

REACTIONS (7)
  - Cerebral haemorrhage [Fatal]
  - Gastrointestinal haemorrhage [Fatal]
  - Haemorrhagic stroke [Fatal]
  - Respiratory failure [Unknown]
  - Acute myocardial infarction [Unknown]
  - Epistaxis [Unknown]
  - Coagulopathy [Unknown]
